FAERS Safety Report 20735531 (Version 1)
Quarter: 2022Q2

REPORT INFORMATION
  Report Type: Report from Study
  Country: IT (occurrence: IT)
  Receive Date: 20220421
  Receipt Date: 20220421
  Transmission Date: 20220721
  Serious: Yes (Hospitalization)
  Sender: FDA-Public Use
  Company Number: None

PATIENT
  Age: 61 Year
  Sex: Female

DRUGS (2)
  1. RAMIPRIL [Suspect]
     Active Substance: RAMIPRIL
     Indication: Hypertension
     Dosage: 50 MILLIGRAM, TOTAL
     Route: 048
     Dates: start: 20220105, end: 20220105
  2. XANAX [Suspect]
     Active Substance: ALPRAZOLAM
     Indication: Mental disorder
     Dosage: 20 DOSAGE FORM, TOTAL
     Route: 048
     Dates: start: 20220104, end: 20220104

REACTIONS (5)
  - Drug abuse [Recovering/Resolving]
  - Oxygen saturation decreased [Recovering/Resolving]
  - Gait disturbance [Recovering/Resolving]
  - Sopor [Recovering/Resolving]
  - Confusional state [Recovering/Resolving]

NARRATIVE: CASE EVENT DATE: 20220105
